FAERS Safety Report 4902028-1 (Version None)
Quarter: 2006Q1

REPORT INFORMATION
  Report Type: 
  Country: None (occurrence: None)
  Receive Date: 20060202
  Receipt Date: 20060202
  Transmission Date: 20060701
  Serious: No
  Sender: FDA-Public Use
  Company Number: None

PATIENT
  Age: 75 Year
  Sex: Female
  Weight: 74 kg

DRUGS (1)
  1. TIGECYCLINE  50MG  WYETH [Suspect]
     Indication: OSTEOMYELITIS
     Dosage: 50MG Q12H IV BOLUS
     Route: 040
     Dates: start: 20051120, end: 20051210

REACTIONS (1)
  - THROMBOCYTOPENIA [None]
